FAERS Safety Report 8056510-1 (Version None)
Quarter: 2012Q1

REPORT INFORMATION
  Report Type: 
  Country: None (occurrence: None)
  Receive Date: 20120119
  Receipt Date: 20120110
  Transmission Date: 20120608
  Serious: Yes (Other)
  Sender: FDA-Public Use
  Company Number: US-ELI_LILLY_AND_COMPANY-US201111001897

PATIENT
  Sex: Female
  Weight: 65.49 kg

DRUGS (5)
  1. ALIMTA [Suspect]
     Indication: LUNG NEOPLASM MALIGNANT
     Dosage: 500 MG/M2, UNKNOWN
     Route: 042
     Dates: start: 20110630
  2. CARBOPLATIN [Concomitant]
     Dosage: UNK, UNKNOWN
  3. VITAMIN B-12 [Concomitant]
     Dosage: 1000 UG, UNK
     Route: 030
     Dates: start: 20110620
  4. FOLIC ACID [Concomitant]
     Dosage: 1000 UG, QD
     Dates: start: 20110620
  5. CORTICOSTEROID NOS [Concomitant]
     Dosage: 12 MG, UNK
     Route: 042
     Dates: start: 20110630

REACTIONS (2)
  - CEREBROVASCULAR ACCIDENT [None]
  - PANCYTOPENIA [None]
